FAERS Safety Report 8134027-3 (Version None)
Quarter: 2012Q1

REPORT INFORMATION
  Report Type: 
  Country: None (occurrence: None)
  Receive Date: 20120214
  Receipt Date: 20120206
  Transmission Date: 20120608
  Serious: Yes (Other)
  Sender: FDA-Public Use
  Company Number: RU-BRISTOL-MYERS SQUIBB COMPANY-16274326

PATIENT
  Age: 32 Year
  Sex: Female

DRUGS (3)
  1. ABACAVIR SULFATE/LAMIVUDINE [Suspect]
     Indication: HIV INFECTION
     Dates: start: 20110301
  2. REYATAZ [Suspect]
     Indication: HIV INFECTION
     Dosage: START DT:MAR2011.
     Route: 048
     Dates: start: 20110201
  3. EPIVIR [Suspect]
     Indication: HIV INFECTION
     Dates: start: 20110201

REACTIONS (2)
  - PREGNANCY [None]
  - ABORTION SPONTANEOUS [None]
